FAERS Safety Report 5585245-X (Version None)
Quarter: 2008Q1

REPORT INFORMATION
  Report Type: 
  Country: None (occurrence: None)
  Receive Date: 20080104
  Receipt Date: 20080104
  Transmission Date: 20080703
  Serious: Yes (Hospitalization)
  Sender: FDA-Public Use
  Company Number: None

PATIENT
  Age: 83 Year
  Sex: Male

DRUGS (2)
  1. LEVODOPA/CARBODOPA 25/100 [Suspect]
     Indication: PARKINSON'S DISEASE
     Dosage: 25/100 TID
     Dates: start: 20070421, end: 20070504
  2. LEVODOPA/CARBODOA 50/200 [Suspect]
     Dosage: 50/200 TID

REACTIONS (1)
  - NEUROLEPTIC MALIGNANT SYNDROME [None]
